FAERS Safety Report 7071413-7 (Version None)
Quarter: 2010Q4

REPORT INFORMATION
  Report Type: 
  Country: None (occurrence: None)
  Receive Date: 20101029
  Receipt Date: 20100218
  Transmission Date: 20110411
  Serious: Yes (Other)
  Sender: FDA-Public Use
  Company Number: A0786862A

PATIENT
  Sex: Female

DRUGS (16)
  1. ADVAIR DISKUS 100/50 [Suspect]
     Indication: PRODUCT USED FOR UNKNOWN INDICATION
     Route: 055
  2. SEREVENT [Suspect]
     Indication: PRODUCT USED FOR UNKNOWN INDICATION
     Route: 055
  3. FLOVENT [Concomitant]
  4. SINGULAIR [Concomitant]
  5. FLONASE [Concomitant]
  6. ALBUTEROL [Concomitant]
  7. XOPENEX [Concomitant]
  8. PULMICORT [Concomitant]
  9. AEROCHAMBER [Concomitant]
  10. PREDNISONE [Concomitant]
  11. CLARINEX [Concomitant]
  12. RHINOCORT [Concomitant]
  13. ASTELIN [Concomitant]
  14. NASONEX [Concomitant]
  15. ZYRTEC [Concomitant]
  16. ZOLOFT [Concomitant]

REACTIONS (4)
  - ASTHMA [None]
  - CONVULSION [None]
  - PHARYNGITIS [None]
  - SINUSITIS [None]
